FAERS Safety Report 4614973-5 (Version None)
Quarter: 2005Q1

REPORT INFORMATION
  Report Type: 
  Country: None (occurrence: None)
  Receive Date: 20050315
  Receipt Date: 20050302
  Transmission Date: 20050727
  Serious: Yes (Other)
  Sender: FDA-Public Use
  Company Number: 2003-03-2061

PATIENT
  Age: 30 Year
  Sex: Female
  Weight: 56.246 kg

DRUGS (9)
  1. CLARITIN [Suspect]
     Indication: MULTIPLE ALLERGIES
     Dosage: 10MG TAB QD ORAL
     Route: 048
     Dates: start: 20010417, end: 20010430
  2. HUMALOG (INSULIN ANALOG) [Concomitant]
  3. SYNTHROID [Concomitant]
  4. PROMETHAZINE [Concomitant]
  5. HUMULIN 70/30 [Concomitant]
  6. ATIVAN [Concomitant]
  7. ALLEGRA [Concomitant]
  8. .. [Concomitant]
  9. .. [Concomitant]

REACTIONS (16)
  - ALOPECIA AREATA [None]
  - ALOPECIA UNIVERSALIS [None]
  - ANXIETY [None]
  - BLOOD GLUCOSE FLUCTUATION [None]
  - CONJUNCTIVITIS ALLERGIC [None]
  - DEPRESSION [None]
  - HAIR DISORDER [None]
  - HAIR TEXTURE ABNORMAL [None]
  - HEADACHE [None]
  - HYPERAEMIA [None]
  - MENSTRUAL DISORDER [None]
  - RHINITIS PERENNIAL [None]
  - SINUSITIS [None]
  - SKIN DISORDER [None]
  - TINNITUS [None]
  - TREATMENT NONCOMPLIANCE [None]
